FAERS Safety Report 7555571-3 (Version None)
Quarter: 2011Q2

REPORT INFORMATION
  Report Type: 
  Country: None (occurrence: None)
  Receive Date: 20110617
  Receipt Date: 20070108
  Transmission Date: 20111010
  Serious: Yes (Hospitalization, Other)
  Sender: FDA-Public Use
  Company Number: PHHO2006BR20208

PATIENT
  Age: 66 Year
  Sex: Female

DRUGS (2)
  1. ATENOLOL [Concomitant]
     Indication: HYPERTENSION
  2. DIOVAN HCT [Suspect]
     Indication: HYPERTENSION
     Dosage: 1 UNK, QD
     Route: 048

REACTIONS (6)
  - FAECAL INCONTINENCE [None]
  - CAROTID ARTERY DISEASE [None]
  - URINARY INCONTINENCE [None]
  - CATARACT [None]
  - SYNCOPE [None]
  - LOSS OF CONSCIOUSNESS [None]
